FAERS Safety Report 5729083-3 (Version None)
Quarter: 2008Q2

REPORT INFORMATION
  Report Type: 
  Country: None (occurrence: None)
  Receive Date: 20080505
  Receipt Date: 20080505
  Transmission Date: 20081010
  Serious: Yes (Other)
  Sender: FDA-Public Use
  Company Number: None

PATIENT
  Sex: Female

DRUGS (1)
  1. BUPROPION HCL [Suspect]
     Dosage: 1 PO DAILY
     Route: 048
     Dates: start: 20070907, end: 20071106

REACTIONS (1)
  - DRUG INEFFECTIVE [None]
